FAERS Safety Report 19099145 (Version 4)
Quarter: 2022Q4

REPORT INFORMATION
  Report Type: Spontaneous
  Country: AR (occurrence: AR)
  Receive Date: 20210406
  Receipt Date: 20221117
  Transmission Date: 20230113
  Serious: Yes (Hospitalization)
  Sender: FDA-Public Use
  Company Number: NVSC2021AR077147

PATIENT
  Sex: Male

DRUGS (3)
  1. GLYCOPYRRONIUM\INDACATEROL [Suspect]
     Active Substance: GLYCOPYRRONIUM\INDACATEROL
     Indication: Chronic obstructive pulmonary disease
     Dosage: 1 DF (0.11/0.05 MG, 30 CAPSULES), QD, STARTED 3 YEARS AGO APPROXIMATELY
     Route: 065
  2. GLYCOPYRRONIUM\INDACATEROL [Suspect]
     Active Substance: GLYCOPYRRONIUM\INDACATEROL
     Dosage: 0.5 MG
     Route: 065
     Dates: start: 2017
  3. GLYCOPYRRONIUM\INDACATEROL [Suspect]
     Active Substance: GLYCOPYRRONIUM\INDACATEROL
     Dosage: 1 X 110 MCG
     Route: 065
     Dates: start: 201711

REACTIONS (14)
  - Neoplasm malignant [Unknown]
  - Fistula [Unknown]
  - Cataract [Unknown]
  - Osteoarthritis [Unknown]
  - Hypoaesthesia [Unknown]
  - Gait disturbance [Unknown]
  - Arthralgia [Unknown]
  - Overweight [Unknown]
  - Pain [Unknown]
  - Arthropathy [Unknown]
  - Hand deformity [Unknown]
  - Epistaxis [Unknown]
  - Rotator cuff syndrome [Unknown]
  - Sensory loss [Unknown]

NARRATIVE: CASE EVENT DATE: 20200101
